FAERS Safety Report 7215274-1 (Version None)
Quarter: 2011Q1

REPORT INFORMATION
  Report Type: 
  Country: None (occurrence: None)
  Receive Date: 20110107
  Receipt Date: 20101229
  Transmission Date: 20110831
  Serious: Yes (Other)
  Sender: FDA-Public Use
  Company Number: FR-JNJFOC-20101201936

PATIENT
  Age: 32 Year
  Sex: Male
  Weight: 71 kg

DRUGS (4)
  1. REMICADE [Suspect]
     Indication: ANKYLOSING SPONDYLITIS
     Route: 042
  2. PROPOFAN [Concomitant]
  3. GAVISCON [Concomitant]
  4. REMICADE [Suspect]
     Route: 042

REACTIONS (1)
  - UVEITIS [None]
